FAERS Safety Report 11168994 (Version 1)
Quarter: 2015Q2

REPORT INFORMATION
  Report Type: Spontaneous
  Country: SE (occurrence: SE)
  Receive Date: 20150605
  Receipt Date: 20150605
  Transmission Date: 20150821
  Serious: Yes (Other)
  Sender: FDA-Public Use
  Company Number: SE-PFIZER INC-2015182665

PATIENT
  Age: 64 Year
  Sex: Male

DRUGS (5)
  1. METOPROLOL [Concomitant]
     Active Substance: METOPROLOL
  2. TROMBYL [Concomitant]
     Active Substance: ASPIRIN
  3. ALFADIL BPH [Suspect]
     Active Substance: DOXAZOSIN MESYLATE
     Indication: BENIGN PROSTATIC HYPERPLASIA
     Dosage: 4 MG, 1X/DAY
     Dates: start: 201312, end: 201412
  4. BETOLVIDON [Concomitant]
     Active Substance: CYANOCOBALAMIN
  5. ENALAPRIL [Concomitant]
     Active Substance: ENALAPRIL

REACTIONS (2)
  - Blood urine present [Recovered/Resolved with Sequelae]
  - Haematospermia [Recovered/Resolved with Sequelae]

NARRATIVE: CASE EVENT DATE: 201401
